FAERS Safety Report 8347509-6 (Version None)
Quarter: 2012Q2

REPORT INFORMATION
  Report Type: 
  Country: None (occurrence: None)
  Receive Date: 20120509
  Receipt Date: 20120504
  Transmission Date: 20120825
  Serious: Yes (Hospitalization)
  Sender: FDA-Public Use
  Company Number: US-ABBOTT-12P-163-0933473-00

PATIENT
  Sex: Female
  Weight: 52.21 kg

DRUGS (2)
  1. HUMIRA [Suspect]
     Dates: start: 20120504
  2. HUMIRA [Suspect]
     Indication: CROHN'S DISEASE
     Dates: start: 20120201, end: 20120503

REACTIONS (4)
  - DIARRHOEA [None]
  - CONDITION AGGRAVATED [None]
  - SMALL INTESTINAL OBSTRUCTION [None]
  - CROHN'S DISEASE [None]
